FAERS Safety Report 6674753-6 (Version None)
Quarter: 2010Q1

REPORT INFORMATION
  Report Type: 
  Country: None (occurrence: None)
  Receive Date: 20100331
  Receipt Date: 20100203
  Transmission Date: 20100710
  Serious: Yes (Life-Threatening, Hospitalization)
  Sender: FDA-Public Use
  Company Number: OSCN-PR-1001S-0029

PATIENT
  Age: 41 Year
  Sex: Male

DRUGS (1)
  1. OMNISCAN [Suspect]
     Indication: DEMYELINATION
     Dosage: 20 ML, SINGLE DOSE, I.V.
     Route: 042
     Dates: start: 20100127, end: 20100127

REACTIONS (10)
  - ABDOMINAL DISCOMFORT [None]
  - ANAPHYLACTOID SHOCK [None]
  - BURNING SENSATION [None]
  - DYSPNOEA [None]
  - HYPOTENSION [None]
  - LOSS OF CONSCIOUSNESS [None]
  - NAUSEA [None]
  - PULSE ABSENT [None]
  - RESPIRATORY ARREST [None]
  - UNRESPONSIVE TO STIMULI [None]
